FAERS Safety Report 9629227 (Version 2)
Quarter: 2015Q4

REPORT INFORMATION
  Report Type: Report from Study
  Country: US (occurrence: US)
  Receive Date: 20131017
  Receipt Date: 20151027
  Transmission Date: 20160305
  Serious: Yes (Death)
  Sender: FDA-Public Use
  Company Number: US-ROCHE-1288942

PATIENT
  Age: 43 Year
  Sex: Female

DRUGS (13)
  1. CATHFLO ACTIVASE [Suspect]
     Active Substance: ALTEPLASE
     Indication: METASTASES TO LIVER
  2. CATHFLO ACTIVASE [Suspect]
     Active Substance: ALTEPLASE
     Indication: RECTAL CANCER METASTATIC
     Route: 042
     Dates: start: 20130731
  3. SODIUM CHLORIDE. [Concomitant]
     Active Substance: SODIUM CHLORIDE
     Dosage: 85.5ML
     Route: 042
  4. ACETAMINOPHEN. [Concomitant]
     Active Substance: ACETAMINOPHEN
     Dosage: GIVEN TWICE
     Route: 048
  5. HYDROCORTISONE. [Concomitant]
     Active Substance: HYDROCORTISONE
     Route: 065
  6. AVASTIN [Suspect]
     Active Substance: BEVACIZUMAB
     Indication: METASTASES TO LIVER
  7. VANCOMYCIN [Concomitant]
     Active Substance: VANCOMYCIN
  8. FLAGYL [Concomitant]
     Active Substance: METRONIDAZOLE\METRONIDAZOLE HYDROCHLORIDE
  9. GENTAMYCIN [Concomitant]
     Active Substance: GENTAMICIN
  10. OXALIPLATIN. [Concomitant]
     Active Substance: OXALIPLATIN
     Route: 042
  11. CEFTRIAXONE. [Concomitant]
     Active Substance: CEFTRIAXONE
  12. AVASTIN [Suspect]
     Active Substance: BEVACIZUMAB
     Indication: RECTAL CANCER METASTATIC
     Route: 042
     Dates: end: 20130731
  13. VASOPRESSIN. [Concomitant]
     Active Substance: VASOPRESSIN

REACTIONS (14)
  - Acute hepatic failure [Fatal]
  - Hyponatraemia [Fatal]
  - Cardiopulmonary failure [Fatal]
  - Metabolic acidosis [Fatal]
  - Rectal cancer metastatic [Fatal]
  - Peritonitis bacterial [Fatal]
  - Septic shock [Fatal]
  - Respiratory failure [Fatal]
  - Hypoglycaemia [Fatal]
  - Coagulopathy [Fatal]
  - Disease progression [Fatal]
  - Hypoxia [Fatal]
  - Acute kidney injury [Fatal]
  - Mental status changes [Fatal]

NARRATIVE: CASE EVENT DATE: 20130904
